FAERS Safety Report 8000536-0 (Version None)
Quarter: 2011Q4

REPORT INFORMATION
  Report Type: 
  Country: None (occurrence: None)
  Receive Date: 20111222
  Receipt Date: 20111219
  Transmission Date: 20120403
  Serious: Yes (Other)
  Sender: FDA-Public Use
  Company Number: IE-JNJFOC-20110408752

PATIENT
  Sex: Female

DRUGS (14)
  1. CALCIUM CARBONATE [Concomitant]
  2. ACETAMINOPHEN [Concomitant]
  3. CRESTOR [Concomitant]
  4. FRUMIL [Concomitant]
  5. FOLIC ACID [Concomitant]
  6. DELTACORTRIL [Concomitant]
  7. SIMPONI [Suspect]
     Indication: PSORIATIC ARTHROPATHY
     Route: 058
     Dates: start: 20110216, end: 20110701
  8. MAXITROL [Concomitant]
  9. SIMPONI [Suspect]
     Route: 058
     Dates: start: 20110801, end: 20111027
  10. NIZATIDINE [Concomitant]
  11. LEVOTHYROXINE SODIUM [Concomitant]
  12. ATENOLOL [Concomitant]
  13. METHOTREXATE [Concomitant]
     Dates: start: 20080101
  14. SPASMONIL [Concomitant]

REACTIONS (4)
  - ALOPECIA [None]
  - CYSTITIS [None]
  - ANGLE CLOSURE GLAUCOMA [None]
  - EYE DISORDER [None]
